FAERS Safety Report 12583775 (Version 1)
Quarter: 2016Q3

REPORT INFORMATION
  Report Type: Spontaneous
  Country: US (occurrence: US)
  Receive Date: 20160722
  Receipt Date: 20160722
  Transmission Date: 20161109
  Serious: Yes (Other)
  Sender: FDA-Public Use
  Company Number: US-TURING PHARMACEUTICALS-2016TNG00031

PATIENT
  Age: 75 Year
  Sex: Male

DRUGS (1)
  1. DARAPRIM [Suspect]
     Active Substance: PYRIMETHAMINE
     Indication: BACTERIAL TOXAEMIA
     Dosage: 75 MG, 1X/DAY
     Route: 048
     Dates: start: 20160227, end: 201607

REACTIONS (4)
  - Condition aggravated [None]
  - White blood cell count decreased [Unknown]
  - Product use issue [Recovered/Resolved]
  - Bacterial toxaemia [Unknown]

NARRATIVE: CASE EVENT DATE: 20160227
